FAERS Safety Report 4280513-6 (Version None)
Quarter: 2004Q1

REPORT INFORMATION
  Report Type: 
  Country: None (occurrence: None)
  Receive Date: 20040128
  Receipt Date: 20040128
  Transmission Date: 20041129
  Serious: Yes (Hospitalization)
  Sender: FDA-Public Use
  Company Number: None

PATIENT
  Age: 35 Year
  Sex: Female
  Weight: 81.6475 kg

DRUGS (1)
  1. NEURONTIN [Suspect]
     Indication: SCIATICA
     Dosage: 4 TIMES
     Dates: start: 20020910, end: 20030828

REACTIONS (2)
  - DEPRESSION [None]
  - SUICIDE ATTEMPT [None]
